FAERS Safety Report 7522505-7 (Version None)
Quarter: 2011Q2

REPORT INFORMATION
  Report Type: 
  Country: None (occurrence: None)
  Receive Date: 20110603
  Receipt Date: 20110531
  Transmission Date: 20111010
  Serious: Yes (Hospitalization)
  Sender: FDA-Public Use
  Company Number: FR-ROCHE-770259

PATIENT
  Sex: Male
  Weight: 70 kg

DRUGS (10)
  1. CISPLATIN [Suspect]
     Route: 042
     Dates: start: 20090513, end: 20100126
  2. AVASTIN [Concomitant]
     Route: 042
     Dates: start: 20091012
  3. TARCEVA [Suspect]
     Route: 048
     Dates: start: 20100625
  4. AVASTIN [Concomitant]
     Route: 042
     Dates: start: 20100201, end: 20110214
  5. CAMPTOSAR [Concomitant]
     Route: 042
     Dates: start: 20100201
  6. AVASTIN [Concomitant]
     Route: 042
     Dates: start: 20101106
  7. TARCEVA [Suspect]
     Route: 048
     Dates: start: 20100629, end: 20110228
  8. TARCEVA [Suspect]
     Route: 048
     Dates: end: 20110307
  9. ETOPOSIDE [Suspect]
     Route: 042
     Dates: start: 20090513, end: 20100126
  10. CAMPTOTHECIN [Concomitant]

REACTIONS (1)
  - ACUTE MYELOID LEUKAEMIA [None]
